FAERS Safety Report 8381393-X (Version None)
Quarter: 2012Q2

REPORT INFORMATION
  Report Type: 
  Country: None (occurrence: None)
  Receive Date: 20120523
  Receipt Date: 20120517
  Transmission Date: 20120825
  Serious: Yes (Hospitalization, Other)
  Sender: FDA-Public Use
  Company Number: PHHY2012JP043708

PATIENT
  Age: 77 Year
  Sex: Male

DRUGS (4)
  1. CYPROHEPTADINE HYDROCHLORIDE HYDRATE [Concomitant]
  2. SENNA-MINT WAF [Suspect]
     Dosage: UNK
     Route: 048
  3. ENALAPRIL MALEATE [Suspect]
     Route: 048
  4. PERIACTIN [Concomitant]

REACTIONS (2)
  - PURPURA [None]
  - MACULE [None]
